FAERS Safety Report 9678185 (Version 1)
Quarter: 2013Q4

REPORT INFORMATION
  Report Type: Spontaneous
  Country: IT (occurrence: IT)
  Receive Date: 20131108
  Receipt Date: 20131108
  Transmission Date: 20140711
  Serious: Yes (Other)
  Sender: FDA-Public Use
  Company Number: PHHY2013IT123706

PATIENT
  Sex: Male

DRUGS (10)
  1. GLIVEC [Suspect]
     Indication: CHRONIC MYELOID LEUKAEMIA
     Dosage: 400 MG, DAILY
     Route: 048
     Dates: start: 20010801
  2. GLIVEC [Suspect]
     Dosage: 400 MG, DAILY
     Route: 048
     Dates: start: 20130412
  3. METHOTREXATE [Suspect]
     Indication: SARCOMA
     Dosage: 50 MG, CYCLIC
     Route: 042
     Dates: start: 20130326
  4. METHOTREXATE [Suspect]
     Dosage: 50 MG, CYCLIC
     Route: 042
     Dates: start: 20130412
  5. NAVELBINE [Suspect]
     Indication: SARCOMA
     Dosage: 36.8 MG, CYCLIC
     Route: 042
     Dates: start: 20130326
  6. NAVELBINE [Suspect]
     Dosage: 36.8 MG, CYCLIC
     Route: 042
     Dates: start: 20130412
  7. ONDANSETRONE HIKMA [Concomitant]
     Dosage: 8 MG, CYCLIC
     Route: 042
     Dates: start: 20130326, end: 20130412
  8. SOLDESAM [Concomitant]
     Dosage: 8 MG, UNK
     Route: 042
     Dates: start: 20130326, end: 20130412
  9. RANIDIL [Concomitant]
     Dosage: 100 MG, UNK
     Route: 042
     Dates: start: 20130326, end: 20130412
  10. TAPAZOLE [Concomitant]
     Dosage: UNK UKN, UNK

REACTIONS (4)
  - Muscle spasms [Unknown]
  - Abdominal pain [Unknown]
  - Nausea [Unknown]
  - Vomiting [Unknown]
